FAERS Safety Report 4796112-3 (Version None)
Quarter: 2005Q4

REPORT INFORMATION
  Report Type: 
  Country: None (occurrence: None)
  Receive Date: 20051007
  Receipt Date: 20050926
  Transmission Date: 20060501
  Serious: Yes (Hospitalization)
  Sender: FDA-Public Use
  Company Number: HQWYE738929SEP05

PATIENT
  Age: 68 Year
  Sex: Male
  Weight: 80.7 kg

DRUGS (17)
  1. RAPAMUNE [Suspect]
     Indication: PROPHYLAXIS AGAINST TRANSPLANT REJECTION
     Dosage: 5  MG 1X PER 1 DAY, ORAL; 3 MG 1X PER 1 DAY, ORAL; 1 MG 1X PER 1 DAY, ORAL; 1 MG 1X PER 2 DAY, ORAL
     Route: 048
     Dates: start: 20030730, end: 20030731
  2. RAPAMUNE [Suspect]
     Indication: PROPHYLAXIS AGAINST TRANSPLANT REJECTION
     Dosage: 5  MG 1X PER 1 DAY, ORAL; 3 MG 1X PER 1 DAY, ORAL; 1 MG 1X PER 1 DAY, ORAL; 1 MG 1X PER 2 DAY, ORAL
     Route: 048
     Dates: start: 20030801, end: 20040621
  3. RAPAMUNE [Suspect]
     Indication: PROPHYLAXIS AGAINST TRANSPLANT REJECTION
     Dosage: 5  MG 1X PER 1 DAY, ORAL; 3 MG 1X PER 1 DAY, ORAL; 1 MG 1X PER 1 DAY, ORAL; 1 MG 1X PER 2 DAY, ORAL
     Route: 048
     Dates: start: 20040622, end: 20041101
  4. RAPAMUNE [Suspect]
     Indication: PROPHYLAXIS AGAINST TRANSPLANT REJECTION
     Dosage: 5  MG 1X PER 1 DAY, ORAL; 3 MG 1X PER 1 DAY, ORAL; 1 MG 1X PER 1 DAY, ORAL; 1 MG 1X PER 2 DAY, ORAL
     Route: 048
     Dates: start: 20041101
  5. NEORAL [Concomitant]
  6. AMLODIPINE [Concomitant]
  7. METOPROLOL TARTRATE [Concomitant]
  8. VASOTEC [Concomitant]
  9. BACTRIM DS [Concomitant]
  10. BACTRIM DS [Concomitant]
  11. DIABETA [Concomitant]
  12. GLYBURIDE [Concomitant]
  13. AVANDIA [Concomitant]
  14. ASPIRIN [Concomitant]
  15. CLOPIDOGREL BISULFATE [Concomitant]
  16. SIMVASTATIN [Concomitant]
  17. VALGANCICLOVIR (VALGANCICLOVIR) [Concomitant]

REACTIONS (24)
  - ABASIA [None]
  - ANAEMIA [None]
  - ANOREXIA [None]
  - ASCITES [None]
  - ASTHENIA [None]
  - CHOLESTASIS [None]
  - COMPLICATIONS OF TRANSPLANTED KIDNEY [None]
  - DEHYDRATION [None]
  - DEPRESSION [None]
  - DIABETIC NEUROPATHY [None]
  - DRUG TOXICITY [None]
  - FATIGUE [None]
  - GALLBLADDER DISORDER [None]
  - HAEMORRHAGIC CYST [None]
  - HEPATIC FIBROSIS [None]
  - HEPATIC NECROSIS [None]
  - HEPATITIS C [None]
  - INTESTINAL MASS [None]
  - LEUKOPENIA [None]
  - PLEURAL EFFUSION [None]
  - RENAL CYST [None]
  - RENAL FAILURE ACUTE [None]
  - THROMBOCYTOPENIA [None]
  - WEIGHT DECREASED [None]
